FAERS Safety Report 7003719-1 (Version None)
Quarter: 2010Q3

REPORT INFORMATION
  Report Type: 
  Country: None (occurrence: None)
  Receive Date: 20100920
  Receipt Date: 20091007
  Transmission Date: 20110219
  Serious: No
  Sender: FDA-Public Use
  Company Number: US-WYE-H11520809

PATIENT
  Sex: Female
  Weight: 63.56 kg

DRUGS (5)
  1. PROTONIX [Suspect]
     Indication: ABDOMINAL DISTENSION
     Route: 048
     Dates: start: 20090924, end: 20091005
  2. PROTONIX [Suspect]
     Indication: GASTROOESOPHAGEAL REFLUX DISEASE
  3. PROTONIX [Suspect]
     Indication: FLATULENCE
  4. PREMARIN [Concomitant]
  5. SYNTHROID [Concomitant]

REACTIONS (6)
  - ABDOMINAL PAIN UPPER [None]
  - CONSTIPATION [None]
  - DECREASED APPETITE [None]
  - DRUG EFFECT INCREASED [None]
  - HEADACHE [None]
  - WEIGHT DECREASED [None]
